FAERS Safety Report 16287816 (Version 2)
Quarter: 2020Q2

REPORT INFORMATION
  Report Type: Spontaneous
  Country: US (occurrence: US)
  Receive Date: 20190508
  Receipt Date: 20200407
  Transmission Date: 20200713
  Serious: Yes (Hospitalization, Disabling, Other)
  Sender: FDA-Public Use
  Company Number: US-ASTRAZENECA-2019SE62788

PATIENT
  Age: 22208 Day
  Sex: Female
  Weight: 86.2 kg

DRUGS (30)
  1. LIDOCAINE. [Concomitant]
     Active Substance: LIDOCAINE
  2. PREVACID 24 HR [Suspect]
     Active Substance: LANSOPRAZOLE
     Indication: GASTROOESOPHAGEAL REFLUX DISEASE
     Route: 065
     Dates: start: 20100101
  3. ALLOPURINOL. [Concomitant]
     Active Substance: ALLOPURINOL
     Indication: NEPHROLITHIASIS
     Dates: start: 20140529, end: 20180301
  4. FOLIC ACID. [Concomitant]
     Active Substance: FOLIC ACID
     Indication: NUTRITIONAL SUPPLEMENTATION
     Dates: start: 2014, end: 20200206
  5. DIAZEPAM. [Concomitant]
     Active Substance: DIAZEPAM
  6. NEXIUM [Suspect]
     Active Substance: ESOMEPRAZOLE MAGNESIUM
     Indication: GASTROOESOPHAGEAL REFLUX DISEASE
     Route: 048
     Dates: start: 20130729, end: 20130730
  7. PRILOSEC OTC [Suspect]
     Active Substance: OMEPRAZOLE MAGNESIUM
     Indication: GASTROOESOPHAGEAL REFLUX DISEASE
     Route: 048
     Dates: start: 20040101
  8. BENZONATATE. [Concomitant]
     Active Substance: BENZONATATE
  9. ZETIA [Concomitant]
     Active Substance: EZETIMIBE
  10. CEPHALEXIN. [Concomitant]
     Active Substance: CEPHALEXIN
  11. LOSARTAN. [Concomitant]
     Active Substance: LOSARTAN
     Indication: HYPERTENSION
     Dates: start: 20140604, end: 20190402
  12. POTASSIUM [Concomitant]
     Active Substance: POTASSIUM
     Indication: NUTRITIONAL SUPPLEMENTATION
     Dates: start: 2014, end: 20200206
  13. PEPTO-BISMOL [Concomitant]
     Active Substance: BISMUTH SUBSALICYLATE
  14. AZITHROMYCIN ANHYDROUS. [Concomitant]
     Active Substance: AZITHROMYCIN ANHYDROUS
  15. HYDROCODONE/ACETAMINOPHEN [Concomitant]
     Active Substance: ACETAMINOPHEN\HYDROCODONE
  16. CALCITRIOL. [Concomitant]
     Active Substance: CALCITRIOL
  17. AMLODIPINE [Concomitant]
     Active Substance: AMLODIPINE BESYLATE
     Indication: HYPERTENSION
     Dates: start: 20141114, end: 20190315
  18. VITAMIN D [Concomitant]
     Active Substance: VITAMIN D NOS
     Indication: NUTRITIONAL SUPPLEMENTATION
     Dates: start: 2014, end: 20200206
  19. TUMS [Concomitant]
     Active Substance: CALCIUM CARBONATE
  20. FUROSEMIDE. [Concomitant]
     Active Substance: FUROSEMIDE
     Indication: DIURETIC THERAPY
     Dates: start: 20140711, end: 20180409
  21. GABAPENTIN. [Concomitant]
     Active Substance: GABAPENTIN
  22. ENOXAPARIN [Concomitant]
     Active Substance: ENOXAPARIN
  23. PREDNISONE. [Concomitant]
     Active Substance: PREDNISONE
  24. NEXIUM [Suspect]
     Active Substance: ESOMEPRAZOLE MAGNESIUM
     Indication: GASTROOESOPHAGEAL REFLUX DISEASE
     Dosage: GENERIC
     Route: 065
     Dates: start: 20130729, end: 20130731
  25. PRILOSEC [Suspect]
     Active Substance: OMEPRAZOLE MAGNESIUM
     Indication: GASTROOESOPHAGEAL REFLUX DISEASE
     Route: 048
     Dates: start: 2014
  26. PANTOPRAZOLE [Suspect]
     Active Substance: PANTOPRAZOLE
     Dosage: GENERIC
     Route: 065
  27. MAALOX ANTACID [Concomitant]
     Active Substance: ALUMINUM HYDROXIDE\DIMETHICONE\MAGNESIUM HYDROXIDE
  28. ONDANSETRON [Concomitant]
     Active Substance: ONDANSETRON
  29. MIRTAZAPINE. [Concomitant]
     Active Substance: MIRTAZAPINE
  30. MUPIROCIN. [Concomitant]
     Active Substance: MUPIROCIN

REACTIONS (4)
  - Chronic kidney disease [Not Recovered/Not Resolved]
  - End stage renal disease [Unknown]
  - Acute kidney injury [Not Recovered/Not Resolved]
  - Renal failure [Unknown]

NARRATIVE: CASE EVENT DATE: 20120811
